FAERS Safety Report 9801542 (Version 3)
Quarter: 2015Q3

REPORT INFORMATION
  Report Type: Spontaneous
  Country: US (occurrence: US)
  Receive Date: 20140107
  Receipt Date: 20150730
  Transmission Date: 20151125
  Serious: No
  Sender: FDA-Public Use
  Company Number: US-GILEAD-2010-0033217

PATIENT
  Age: 77 Year
  Sex: Female

DRUGS (2)
  1. RANEXA [Suspect]
     Active Substance: RANOLAZINE
     Indication: ANGINA PECTORIS
     Route: 048
  2. RANEXA [Suspect]
     Active Substance: RANOLAZINE
     Route: 048

REACTIONS (3)
  - Abasia [Unknown]
  - Dizziness [Unknown]
  - Speech disorder [Unknown]
